FAERS Safety Report 5195213-8 (Version None)
Quarter: 2006Q4

REPORT INFORMATION
  Report Type: 
  Country: None (occurrence: None)
  Receive Date: 20061229
  Receipt Date: 20061020
  Transmission Date: 20070319
  Serious: Yes (Disabling)
  Sender: FDA-Public Use
  Company Number: IE-PFIZER INC-2006129033

PATIENT
  Age: 71 Year
  Sex: Male
  Weight: 72.6 kg

DRUGS (4)
  1. INSPRA [Suspect]
     Indication: BLOOD PRESSURE ABNORMAL
     Route: 048
  2. LISINOPRIL [Concomitant]
  3. NEBIVOLOL HCL [Concomitant]
  4. FELODIPINE [Concomitant]

REACTIONS (3)
  - ARTHRITIS [None]
  - MUSCLE STRAIN [None]
  - OEDEMA PERIPHERAL [None]
